FAERS Safety Report 5887195-8 (Version None)
Quarter: 2008Q3

REPORT INFORMATION
  Report Type: 
  Country: None (occurrence: None)
  Receive Date: 20080915
  Receipt Date: 20080902
  Transmission Date: 20090109
  Serious: Yes (Death, Hospitalization)
  Sender: FDA-Public Use
  Company Number: GXKR2008FR08357

PATIENT
  Age: 80 Year
  Sex: Female

DRUGS (2)
  1. METHOTREXATE [Suspect]
     Indication: POLYARTHRITIS
     Dosage: 12.5 MG/WEEK
  2. PREDNISONE TAB [Suspect]
     Indication: POLYARTHRITIS
     Dosage: 5- 1 5 MG/DAY

REACTIONS (8)
  - ACUTE RESPIRATORY DISTRESS SYNDROME [None]
  - ANOREXIA [None]
  - INFLAMMATION [None]
  - LYMPHOPENIA [None]
  - PHAEHYPHOMYCOSIS [None]
  - SKIN ULCER [None]
  - STAPHYLOCOCCAL INFECTION [None]
  - WEIGHT DECREASED [None]
